FAERS Safety Report 4752585-3 (Version None)
Quarter: 2005Q3

REPORT INFORMATION
  Report Type: 
  Country: None (occurrence: None)
  Receive Date: 20050824
  Receipt Date: 20050809
  Transmission Date: 20060218
  Serious: Yes (Other)
  Sender: FDA-Public Use
  Company Number: USA0508105050

PATIENT
  Age: 62 Year
  Sex: Female

DRUGS (1)
  1. EVISTA [Suspect]

REACTIONS (5)
  - DECREASED ACTIVITY [None]
  - DYSPHAGIA [None]
  - OESOPHAGEAL DISORDER [None]
  - POST PROCEDURAL COMPLICATION [None]
  - SURGERY [None]
